FAERS Safety Report 6211184-7 (Version None)
Quarter: 2009Q2

REPORT INFORMATION
  Report Type: 
  Country: None (occurrence: None)
  Receive Date: 20090602
  Receipt Date: 20090522
  Transmission Date: 20091009
  Serious: Yes (Death)
  Sender: FDA-Public Use
  Company Number: JP-ROCHE-635441

PATIENT
  Age: 4 Month
  Sex: Male

DRUGS (32)
  1. DENOSINE IV [Suspect]
     Indication: CYTOMEGALOVIRUS INFECTION
     Dosage: FORM: INFUSION
     Route: 041
     Dates: start: 20090117, end: 20090118
  2. ROCEPHIN [Suspect]
     Indication: DRUG USE FOR UNKNOWN INDICATION
     Route: 041
     Dates: start: 20081226, end: 20090110
  3. DORMICUM (INJ) [Suspect]
     Indication: DRUG USE FOR UNKNOWN INDICATION
     Route: 041
     Dates: start: 20081230, end: 20090109
  4. FULCALIQ 2 [Suspect]
     Indication: MALNUTRITION
     Route: 042
     Dates: start: 20081230, end: 20090119
  5. MEROPEN [Suspect]
     Indication: DRUG USE FOR UNKNOWN INDICATION
     Route: 041
     Dates: start: 20081226, end: 20090109
  6. DECADRON [Suspect]
     Indication: DRUG USE FOR UNKNOWN INDICATION
     Route: 041
     Dates: start: 20081226, end: 20081228
  7. FAMOTIDINE [Suspect]
     Indication: DRUG USE FOR UNKNOWN INDICATION
     Route: 041
     Dates: start: 20081226, end: 20090112
  8. D-MANNITOL [Suspect]
     Indication: BRAIN OEDEMA
     Route: 041
     Dates: start: 20081226, end: 20090119
  9. NAFAMOSTAT MESYLATE [Suspect]
     Indication: DRUG USE FOR UNKNOWN INDICATION
     Dosage: DRUG REPORTED AS: COAHIBITOR
     Route: 041
     Dates: start: 20081226, end: 20090109
  10. NAFAMOSTAT MESYLATE [Suspect]
     Route: 041
     Dates: start: 20090111, end: 20090112
  11. NOVOLIN R [Suspect]
     Indication: DRUG USE FOR UNKNOWN INDICATION
     Dosage: FORM: VIAL
     Route: 042
     Dates: start: 20081230, end: 20081231
  12. MEYLON [Suspect]
     Indication: DRUG USE FOR UNKNOWN INDICATION
     Route: 042
     Dates: start: 20081230, end: 20081230
  13. MINERALIN [Suspect]
     Indication: MALNUTRITION
     Dosage: DOSE: 1 VIAL, FORM: VIAL
     Route: 041
     Dates: start: 20081230, end: 20090119
  14. HEPARINE NOVO [Suspect]
     Indication: ARTERIAL CATHETERISATION
     Route: 041
     Dates: start: 20081231, end: 20090120
  15. AMINO ACID INJ [Suspect]
     Indication: DRUG USE FOR UNKNOWN INDICATION
     Route: 041
     Dates: start: 20090103, end: 20090113
  16. ASPIRIN [Suspect]
     Indication: DRUG USE FOR UNKNOWN INDICATION
     Route: 048
     Dates: start: 20090103, end: 20090107
  17. LEBENIN [Suspect]
     Indication: DRUG USE FOR UNKNOWN INDICATION
     Route: 048
     Dates: start: 20090108, end: 20090108
  18. LEBENIN [Suspect]
     Route: 048
     Dates: start: 20090109, end: 20090112
  19. LEBENIN [Suspect]
     Route: 048
     Dates: start: 20090113, end: 20090113
  20. TILACTASE [Suspect]
     Indication: DRUG USE FOR UNKNOWN INDICATION
     Dosage: DRUG REPORTED AS: MILLACT
     Route: 048
     Dates: start: 20090108, end: 20090108
  21. TILACTASE [Suspect]
     Route: 048
     Dates: start: 20090109, end: 20090113
  22. TILACTASE [Suspect]
     Route: 048
     Dates: start: 20090114, end: 20090114
  23. BIOFERMIN [Suspect]
     Indication: DRUG USE FOR UNKNOWN INDICATION
     Route: 048
     Dates: start: 20090113, end: 20090113
  24. BIOFERMIN [Suspect]
     Route: 048
     Dates: start: 20090114, end: 20090118
  25. NEOPHAGEN [Suspect]
     Indication: LIVER DISORDER
     Route: 041
     Dates: start: 20090114, end: 20090118
  26. ALBUMIN (HUMAN) [Suspect]
     Indication: DRUG USE FOR UNKNOWN INDICATION
     Dosage: DRUG REPORTED: ALBUMIN CUTTER
     Route: 065
     Dates: start: 20090114, end: 20090114
  27. SELBEX [Suspect]
     Indication: DRUG USE FOR UNKNOWN INDICATION
     Route: 048
     Dates: start: 20090115, end: 20090115
  28. SELBEX [Suspect]
     Route: 048
     Dates: start: 20090116, end: 20090118
  29. KAYTWO [Suspect]
     Indication: DRUG USE FOR UNKNOWN INDICATION
     Route: 048
     Dates: start: 20090115, end: 20090118
  30. INTRALIPID 10% [Suspect]
     Indication: MALNUTRITION
     Route: 041
     Dates: start: 20090116, end: 20090118
  31. BIOFERMIN [Concomitant]
     Route: 048
     Dates: start: 20090119, end: 20090119
  32. SELBEX [Concomitant]
     Route: 048
     Dates: start: 20090119, end: 20090119

REACTIONS (1)
  - STEVENS-JOHNSON SYNDROME [None]
